FAERS Safety Report 20789387 (Version 1)
Quarter: 2022Q2

REPORT INFORMATION
  Report Type: Spontaneous
  Country: US (occurrence: None)
  Receive Date: 20220504
  Receipt Date: 20220504
  Transmission Date: 20220720
  Serious: Yes (unspecified)
  Sender: FDA-Public Use
  Company Number: None

PATIENT
  Age: 61 Year
  Sex: Female
  Weight: 45.9 kg

DRUGS (2)
  1. VENOFER [Suspect]
     Active Substance: IRON SUCROSE
     Indication: Iron deficiency anaemia
     Dosage: FREQUENCY : AS NEEDED;?
     Route: 041
     Dates: start: 20220421, end: 20220421
  2. VENOFER [Concomitant]
     Active Substance: IRON SUCROSE
     Dates: start: 20220421, end: 20220421

REACTIONS (5)
  - Nausea [None]
  - Pruritus [None]
  - Dyspnoea [None]
  - Chest discomfort [None]
  - Infusion related reaction [None]

NARRATIVE: CASE EVENT DATE: 20220421
